FAERS Safety Report 10084698 (Version 1)
Quarter: 2014Q2

REPORT INFORMATION
  Report Type: Spontaneous
  Country: US (occurrence: None)
  Receive Date: 20140414
  Receipt Date: 20140414
  Transmission Date: 20141212
  Serious: Yes (Other)
  Sender: FDA-Public Use
  Company Number: 2014SA034579

PATIENT
  Sex: Female

DRUGS (9)
  1. AUBAGIO [Suspect]
     Indication: MULTIPLE SCLEROSIS
     Route: 048
     Dates: start: 20130317, end: 20140319
  2. BACLOFEN [Concomitant]
  3. DONEPEZIL [Concomitant]
  4. LEVOTHYROXINE [Concomitant]
  5. FUROSEMIDE [Concomitant]
  6. AMPYRA [Concomitant]
  7. DOCUSATE/ SENNA ALEXANDRINA [Concomitant]
  8. IRON [Concomitant]
  9. VITAMINS [Concomitant]

REACTIONS (1)
  - Subcutaneous abscess [None]
